FAERS Safety Report 7202127-8 (Version None)
Quarter: 2010Q4

REPORT INFORMATION
  Report Type: 
  Country: None (occurrence: None)
  Receive Date: 20101229
  Receipt Date: 20101214
  Transmission Date: 20110411
  Serious: Yes (Other)
  Sender: FDA-Public Use
  Company Number: PHHY2010US75428

PATIENT
  Sex: Male

DRUGS (1)
  1. EXFORGE [Suspect]
     Dosage: UNK

REACTIONS (6)
  - BLISTER [None]
  - PRURITUS [None]
  - RASH MACULAR [None]
  - SCAB [None]
  - SKIN DISORDER [None]
  - SKIN HAEMORRHAGE [None]
